FAERS Safety Report 16595140 (Version 1)
Quarter: 2019Q3

REPORT INFORMATION
  Report Type: Spontaneous
  Country: CN (occurrence: CN)
  Receive Date: 20190718
  Receipt Date: 20190718
  Transmission Date: 20191004
  Serious: Yes (Hospitalization)
  Sender: FDA-Public Use
  Company Number: PHHY2019CN163558

PATIENT
  Age: 82 Year
  Sex: Female

DRUGS (1)
  1. CAPTOPRIL. [Suspect]
     Active Substance: CAPTOPRIL
     Indication: HYPERTENSION
     Dosage: 25 MG, TID
     Route: 065

REACTIONS (9)
  - Muscular weakness [Recovering/Resolving]
  - Epilepsy [Recovered/Resolved]
  - Gait inability [Unknown]
  - Slow response to stimuli [Unknown]
  - Loss of consciousness [Recovering/Resolving]
  - Hypoglycaemia [Recovered/Resolved]
  - Insulin autoimmune syndrome [Unknown]
  - Hyperhidrosis [Unknown]
  - Daydreaming [Unknown]
